FAERS Safety Report 5147987-X (Version None)
Quarter: 2006Q4

REPORT INFORMATION
  Report Type: 
  Country: None (occurrence: None)
  Receive Date: 20061110
  Receipt Date: 20061030
  Transmission Date: 20070319
  Serious: Yes (Other)
  Sender: FDA-Public Use
  Company Number: 2006GB01968

PATIENT
  Age: 37 Year
  Sex: Female

DRUGS (2)
  1. QUETIAPINE [Suspect]
     Route: 048
  2. QUETIAPINE [Suspect]
     Route: 048

REACTIONS (6)
  - ABNORMAL BEHAVIOUR [None]
  - CEREBRAL THROMBOSIS [None]
  - DIZZINESS [None]
  - PSYCHOTIC DISORDER [None]
  - SOMNOLENCE [None]
  - THROMBOSIS [None]
